FAERS Safety Report 21192050 (Version 2)
Quarter: 2023Q1

REPORT INFORMATION
  Report Type: Spontaneous
  Country: None (occurrence: GB)
  Receive Date: 20220809
  Receipt Date: 20230214
  Transmission Date: 20230418
  Serious: Yes (Life-Threatening, Hospitalization, Other)
  Sender: FDA-Public Use
  Company Number: GB-Breckenridge Pharmaceutical, Inc.-2131653

PATIENT
  Sex: Male

DRUGS (9)
  1. OMEPRAZOLE [Suspect]
     Active Substance: OMEPRAZOLE
  2. REVLIMID [Suspect]
     Active Substance: LENALIDOMIDE
  3. NINLARO [Suspect]
     Active Substance: IXAZOMIB CITRATE
  4. Adcal-D3 (CALCIUM CARBONATE; COLECALCIFEROL) [Concomitant]
  5. CO-TRIMOXAZOLE (TRIMETHOPRIM;?SULPHAMETHOXAZOLE) [Concomitant]
  6. DEXAMETHASONE [Concomitant]
     Active Substance: DEXAMETHASONE
  7. LOPERAMIDE HYDROCHLORIDE [Concomitant]
     Active Substance: LOPERAMIDE HYDROCHLORIDE
  8. METOCLOPRAMIDE [Concomitant]
     Active Substance: METOCLOPRAMIDE
  9. XARELTO [Concomitant]
     Active Substance: RIVAROXABAN

REACTIONS (16)
  - Cerebrovascular accident [Unknown]
  - Inappropriate schedule of product administration [Unknown]
  - Neutrophil count abnormal [Unknown]
  - Hypoaesthesia [Unknown]
  - Balance disorder [Unknown]
  - Confusional state [Unknown]
  - Fall [Unknown]
  - Malaise [Unknown]
  - Limb discomfort [Unknown]
  - Gait disturbance [Unknown]
  - Musculoskeletal chest pain [Unknown]
  - Productive cough [Unknown]
  - Feeling cold [Unknown]
  - Chromaturia [Unknown]
  - Pyrexia [Unknown]
  - Decreased appetite [Unknown]
